FAERS Safety Report 4450959-1 (Version None)
Quarter: 2004Q3

REPORT INFORMATION
  Report Type: 
  Country: None (occurrence: None)
  Receive Date: 20040916
  Receipt Date: 20040210
  Transmission Date: 20050211
  Serious: Yes (Other)
  Sender: FDA-Public Use
  Company Number: US-BRISTOL-MYERS SQUIBB COMPANY-12500898

PATIENT
  Age: 21 Year
  Sex: Female

DRUGS (1)
  1. STADOL [Suspect]
     Indication: PAIN
     Dosage: 15-JAN-1994: 2MG IM 18-JAN-1994: 2MG EARLY LABOR, 1MG LATE LABOR IV 15-JAN-1995: 2MG IM + IV
     Route: 042
     Dates: start: 19940101, end: 19950101

REACTIONS (3)
  - DEPENDENCE [None]
  - NORMAL NEWBORN [None]
  - PREGNANCY [None]
